FAERS Safety Report 9921808 (Version 2)
Quarter: 2014Q1

REPORT INFORMATION
  Report Type: Spontaneous
  Country: FR (occurrence: FR)
  Receive Date: 20140225
  Receipt Date: 20140227
  Transmission Date: 20141002
  Serious: Yes (Hospitalization)
  Sender: FDA-Public Use
  Company Number: FR-PFIZER INC-2014050358

PATIENT
  Age: 28 Year
  Sex: Female

DRUGS (10)
  1. XANAX [Suspect]
     Dosage: 1 TO 3 TABLETS DAILY
     Route: 048
  2. XANAX [Suspect]
     Dosage: UNK
     Route: 048
     Dates: start: 20140128
  3. AVLOCARDYL [Suspect]
     Dosage: 40 MG, DAILY
     Route: 048
  4. AVLOCARDYL [Suspect]
     Dosage: 50 TABLETS OF 40 MG, UNK
     Route: 048
     Dates: start: 20140128
  5. ZOLPIDEM [Suspect]
     Dosage: 10 MG, AS NEEDED
     Route: 048
  6. ZOLPIDEM [Suspect]
     Dosage: 10 DF, UNK
     Route: 048
     Dates: start: 20140128
  7. LITHIUM [Concomitant]
     Dosage: 3 TABLETS OF 250 MG DAILY 1 IN THE EVENING AND 2 IN THE EVENING
     Route: 048
  8. SEROPLEX [Concomitant]
     Dosage: 20 MG, DAILY
     Route: 048
  9. ABILIFY [Concomitant]
     Dosage: 10 MG, DAILY
     Route: 048
  10. EPITOMAX [Concomitant]
     Dosage: 2 TABLETS OF 100 MG, DAILY
     Route: 048

REACTIONS (6)
  - Overdose [Recovered/Resolved]
  - Bradycardia [Recovering/Resolving]
  - Hypotension [Recovered/Resolved]
  - Vomiting [Recovered/Resolved]
  - Somnolence [Recovered/Resolved]
  - Hypotonia [Recovered/Resolved]
